FAERS Safety Report 4676713-3 (Version None)
Quarter: 2005Q2

REPORT INFORMATION
  Report Type: 
  Country: None (occurrence: None)
  Receive Date: 20050527
  Receipt Date: 20050214
  Transmission Date: 20051028
  Serious: Yes (Hospitalization)
  Sender: FDA-Public Use
  Company Number: US-NOVOPROD-242277

PATIENT
  Age: 14 Year
  Sex: Male
  Weight: 45 kg

DRUGS (2)
  1. NORDITROPIN CARTRIDGES [Suspect]
     Indication: GROWTH HORMONE DEFICIENCY
     Dosage: 2.3 MG, QD
     Route: 058
     Dates: start: 20030501, end: 20050206
  2. NORDITROPIN CARTRIDGES [Suspect]
     Dosage: 2.4 MG, QD
     Route: 058
     Dates: start: 20050207

REACTIONS (1)
  - CONVULSION [None]
